FAERS Safety Report 11054627 (Version 1)
Quarter: 2015Q2

REPORT INFORMATION
  Report Type: Spontaneous
  Country: US (occurrence: US)
  Receive Date: 20150422
  Receipt Date: 20150422
  Transmission Date: 20150821
  Serious: No
  Sender: FDA-Public Use
  Company Number: US-B.I. PHARMACEUTICALS,INC./RIDGEFIELD-2015-BI-19420BP

PATIENT
  Age: 49 Year
  Sex: Male
  Weight: 159 kg

DRUGS (1)
  1. JARDIANCE [Suspect]
     Active Substance: EMPAGLIFLOZIN
     Indication: TYPE 2 DIABETES MELLITUS
     Dosage: 25 MG
     Route: 048
     Dates: start: 20150317

REACTIONS (3)
  - Urinary tract infection [Unknown]
  - Pollakiuria [Unknown]
  - Blood urine present [Unknown]

NARRATIVE: CASE EVENT DATE: 20150320
